FAERS Safety Report 14967793 (Version 4)
Quarter: 2019Q3

REPORT INFORMATION
  Report Type: Spontaneous
  Country: US (occurrence: US)
  Receive Date: 20180604
  Receipt Date: 20190923
  Transmission Date: 20191004
  Serious: Yes (Disabling, Other)
  Sender: FDA-Public Use
  Company Number: US-PFIZER INC-2018223399

PATIENT
  Age: 47 Year
  Sex: Female
  Weight: 61.22 kg

DRUGS (7)
  1. TRAZODONE [Concomitant]
     Active Substance: TRAZODONE HYDROCHLORIDE
     Dosage: UNK
     Dates: start: 2013
  2. LYRICA [Suspect]
     Active Substance: PREGABALIN
     Dosage: 600 MG, DAILY
  3. LYRICA [Suspect]
     Active Substance: PREGABALIN
     Dosage: 300 MG, DAILY
  4. LYRICA [Suspect]
     Active Substance: PREGABALIN
     Indication: FIBROMYALGIA
     Dosage: 150 MG, 2X/DAY
     Route: 048
     Dates: start: 2008
  5. LAMICTAL [Concomitant]
     Active Substance: LAMOTRIGINE
     Dosage: UNK
     Dates: start: 2010
  6. LEVOTHYROXIN [Concomitant]
     Active Substance: LEVOTHYROXINE
     Dosage: UNK
     Dates: start: 2011
  7. CYMBALTA [Concomitant]
     Active Substance: DULOXETINE HYDROCHLORIDE
     Dosage: UNK
     Dates: start: 201712

REACTIONS (7)
  - Frustration tolerance decreased [Unknown]
  - Fibromyalgia [Not Recovered/Not Resolved]
  - Impaired work ability [Not Recovered/Not Resolved]
  - Vision blurred [Recovered/Resolved]
  - Condition aggravated [Not Recovered/Not Resolved]
  - Chronic fatigue syndrome [Not Recovered/Not Resolved]
  - Prescribed overdose [Recovered/Resolved]

NARRATIVE: CASE EVENT DATE: 2012
